FAERS Safety Report 16702591 (Version 1)
Quarter: 2019Q3

REPORT INFORMATION
  Report Type: Spontaneous
  Country: US (occurrence: US)
  Receive Date: 20190814
  Receipt Date: 20190814
  Transmission Date: 20191004
  Serious: Yes (Hospitalization, Disabling, Other)
  Sender: FDA-Public Use
  Company Number: US-009507513-1908USA005570

PATIENT
  Age: 21 Year
  Sex: Female

DRUGS (1)
  1. NUVARING [Suspect]
     Active Substance: ETHINYL ESTRADIOL\ETONOGESTREL
     Indication: CONTRACEPTION
     Dosage: ONE (0.015/0.12) RING
     Route: 067
     Dates: start: 20190205, end: 20190615

REACTIONS (2)
  - Deep vein thrombosis [Unknown]
  - Gait inability [Unknown]

NARRATIVE: CASE EVENT DATE: 2019
